FAERS Safety Report 10253506 (Version 4)
Quarter: 2014Q4

REPORT INFORMATION
  Report Type: Report from Study
  Country: CA (occurrence: CA)
  Receive Date: 20140623
  Receipt Date: 20141104
  Transmission Date: 20150528
  Serious: Yes (Other)
  Sender: FDA-Public Use
  Company Number: CA-SA-2014SA058795

PATIENT
  Age: 32 Year
  Sex: Female

DRUGS (3)
  1. VITAMIN D [Concomitant]
     Active Substance: CHOLECALCIFEROL
     Indication: MULTIPLE SCLEROSIS
     Route: 048
  2. AUBAGIO [Suspect]
     Active Substance: TERIFLUNOMIDE
     Indication: MULTIPLE SCLEROSIS
     Route: 048
     Dates: start: 20140407, end: 20140508
  3. ORTHO EVRA [Concomitant]
     Active Substance: ETHINYL ESTRADIOL\NORELGESTROMIN
     Indication: CONTRACEPTION
     Dosage: ROUTE: PATCH

REACTIONS (9)
  - Hepatomegaly [Unknown]
  - Reflux gastritis [Unknown]
  - Abdominal pain [Recovered/Resolved]
  - Hepatic enzyme increased [Recovered/Resolved]
  - Oesophageal pain [Recovered/Resolved]
  - Hepatitis [Recovering/Resolving]
  - Asthenia [Unknown]
  - Abdominal pain upper [Recovered/Resolved]
  - Nausea [Recovered/Resolved]

NARRATIVE: CASE EVENT DATE: 201404
